FAERS Safety Report 4434138-X (Version None)
Quarter: 2004Q3

REPORT INFORMATION
  Report Type: 
  Country: None (occurrence: None)
  Receive Date: 20040826
  Receipt Date: 20031114
  Transmission Date: 20050211
  Serious: Yes (Other)
  Sender: FDA-Public Use
  Company Number: PHBS2003CH12721

PATIENT
  Age: 53 Year
  Sex: Female

DRUGS (6)
  1. ENTUMIN [Suspect]
     Dosage: 60 MG IF NEEDED
     Route: 065
  2. MIACALCIN [Suspect]
     Indication: NECROSIS
     Dosage: 400 MG/D
     Route: 065
     Dates: start: 20031003, end: 20031006
  3. TRAMAL [Suspect]
     Indication: NECROSIS
     Dosage: 200 MG/D
     Route: 065
     Dates: end: 20031004
  4. NEXIUM [Suspect]
     Dosage: 40 MG/D
     Route: 065
  5. ALDACTONE [Concomitant]
     Dosage: 100 MG/D
     Route: 065
  6. OXAZEPAM [Concomitant]
     Dosage: 15 MG IF NEEDED
     Route: 065

REACTIONS (3)
  - CONFUSIONAL STATE [None]
  - SEDATION [None]
  - STUPOR [None]
